FAERS Safety Report 5024327-8 (Version None)
Quarter: 2006Q2

REPORT INFORMATION
  Report Type: 
  Country: None (occurrence: None)
  Receive Date: 20060613
  Receipt Date: 20060602
  Transmission Date: 20061013
  Serious: Yes (Congenital Anomaly)
  Sender: FDA-Public Use
  Company Number: GB-ABBOTT-06P-167-0335144-00

PATIENT
  Sex: Female

DRUGS (1)
  1. EPILIM TABLETS [Suspect]
     Indication: DRUG EXPOSURE DURING PREGNANCY

REACTIONS (4)
  - EPILEPSY [None]
  - FOETAL VALPROATE SYNDROME [None]
  - LEARNING DISABILITY [None]
  - SPEECH DISORDER DEVELOPMENTAL [None]
